FAERS Safety Report 8780572 (Version 1)
Quarter: 2012Q4

REPORT INFORMATION
  Report Type: 
  Country: DE (occurrence: DE)
  Receive Date: 20120913
  Receipt Date: 20120913
  Transmission Date: 20130627
  Serious: Yes (Other)
  Sender: FDA-Public Use
  Company Number: DE-ASTRAZENECA-2008AC02507

PATIENT
  Age: 30 Year
  Sex: Male

DRUGS (4)
  1. PROPOFOL [Suspect]
     Indication: SEDATION
     Dosage: UP TO 15 TIMES A DAY, UP TO TWO AMPOULES OF 200 MG DAILY
     Route: 042
  2. PROPOFOL [Suspect]
     Indication: SEDATION
     Dosage: DOSE RANGE OF  50100 mg
     Route: 042
  3. PROPOFOL [Suspect]
     Indication: SEDATION
     Dosage: NUMBER OF INJECTION INCREASED TO 20 TO 40 PER DAY
     Route: 042
  4. PROPOFOL [Suspect]
     Indication: SEDATION
     Dosage: Increased the cumulative daily dose to 4 g; the single doses remained stable at 100200 mg.
     Route: 042

REACTIONS (1)
  - Drug dependence [Unknown]
